FAERS Safety Report 6417094-4 (Version None)
Quarter: 2009Q4

REPORT INFORMATION
  Report Type: 
  Country: None (occurrence: None)
  Receive Date: 20091028
  Receipt Date: 20091022
  Transmission Date: 20100525
  Serious: Yes (Life-Threatening, Disabling)
  Sender: FDA-Public Use
  Company Number: GB-SANOFI-SYNTHELABO-A01200910948

PATIENT
  Age: 2 Year
  Sex: Female

DRUGS (2)
  1. ASPIRIN [Concomitant]
     Indication: ATRIAL SEPTAL DEFECT REPAIR
     Dosage: UNK
     Route: 048
     Dates: start: 20090921
  2. PLAVIX [Suspect]
     Indication: ATRIAL SEPTAL DEFECT REPAIR
     Dosage: UNK
     Route: 048
     Dates: start: 20090921, end: 20090924

REACTIONS (3)
  - OFF LABEL USE [None]
  - OROPHARYNGEAL BLISTERING [None]
  - OROPHARYNGEAL PAIN [None]
